FAERS Safety Report 6035977-4 (Version None)
Quarter: 2009Q1

REPORT INFORMATION
  Report Type: 
  Country: None (occurrence: None)
  Receive Date: 20090113
  Receipt Date: 20081105
  Transmission Date: 20090719
  Serious: Yes (Other)
  Sender: FDA-Public Use
  Company Number: US-JNJFOC-20081101237

PATIENT
  Age: 60 Year
  Sex: Male
  Weight: 68.04 kg

DRUGS (2)
  1. PREZISTA [Suspect]
     Route: 048
  2. PREZISTA [Suspect]
     Indication: HIV INFECTION
     Route: 048

REACTIONS (6)
  - ACCIDENTAL OVERDOSE [None]
  - DIARRHOEA [None]
  - DRUG ADMINISTRATION ERROR [None]
  - HEADACHE [None]
  - NAUSEA [None]
  - PRODUCT QUALITY ISSUE [None]
